FAERS Safety Report 14707225 (Version 1)
Quarter: 2018Q2

REPORT INFORMATION
  Report Type: Spontaneous
  Country: FR (occurrence: FR)
  Receive Date: 20180403
  Receipt Date: 20180403
  Transmission Date: 20180711
  Serious: Yes (Hospitalization)
  Sender: FDA-Public Use
  Company Number: FR-ASTRAZENECA-2018SE38437

PATIENT
  Age: 88 Year
  Sex: Male

DRUGS (4)
  1. INEXIUM [Suspect]
     Active Substance: ESOMEPRAZOLE
     Route: 048
     Dates: end: 20160817
  2. PERMIXON [Suspect]
     Active Substance: HERBALS\SAW PALMETTO
     Route: 065
     Dates: end: 20160817
  3. LYSANXIA [Suspect]
     Active Substance: PRAZEPAM
     Route: 048
     Dates: end: 20160817
  4. LERCANIDIPINE [Suspect]
     Active Substance: LERCANIDIPINE
     Route: 048
     Dates: end: 20160817

REACTIONS (2)
  - Fall [Recovered/Resolved]
  - Orthostatic hypotension [Recovered/Resolved]

NARRATIVE: CASE EVENT DATE: 20160817
